FAERS Safety Report 11224992 (Version 2)
Quarter: 2015Q3

REPORT INFORMATION
  Report Type: Spontaneous
  Country: US (occurrence: None)
  Receive Date: 20150625
  Receipt Date: 20150710
  Transmission Date: 20151125
  Serious: Yes (Other)
  Sender: FDA-Public Use
  Company Number: COL_20023_2015

PATIENT
  Sex: Female

DRUGS (1)
  1. TOMS CAVITY PROTECTION SPEARMINT FIGHTS CAVITIES FRESH BREATH [Suspect]
     Active Substance: SODIUM MONOFLUOROPHOSPHATE
     Indication: PRODUCT USED FOR UNKNOWN INDICATION
     Route: 048

REACTIONS (2)
  - Gastrointestinal mucosal disorder [None]
  - Gastrointestinal haemorrhage [None]
